FAERS Safety Report 9775890 (Version 1)
Quarter: 2013Q4

REPORT INFORMATION
  Report Type: Spontaneous
  Country: FR (occurrence: FR)
  Receive Date: 20131220
  Receipt Date: 20131220
  Transmission Date: 20140711
  Serious: Yes (Hospitalization)
  Sender: FDA-Public Use
  Company Number: FR-B.I. PHARMACEUTICALS,INC./RIDGEFIELD-2013-BI-42458FF

PATIENT
  Age: 77 Year
  Sex: Male

DRUGS (4)
  1. PRADAXA [Suspect]
     Indication: ATRIAL FIBRILLATION
     Dosage: 220 MG
     Route: 048
     Dates: start: 20131025, end: 20131118
  2. EPITOMAX [Concomitant]
     Indication: EPILEPSY
  3. BISOPROLOL [Concomitant]
  4. FUROSEMIDE [Concomitant]

REACTIONS (1)
  - Deep vein thrombosis [Unknown]
